FAERS Safety Report 8990792 (Version 1)
Quarter: 2012Q4

REPORT INFORMATION
  Report Type: Spontaneous
  Country: US (occurrence: None)
  Receive Date: 20121226
  Receipt Date: 20121226
  Transmission Date: 20130627
  Serious: No
  Sender: FDA-Public Use
  Company Number: None

PATIENT
  Age: 48 Year
  Sex: Female
  Weight: 104.33 kg

DRUGS (1)
  1. OMNIPAQUE [Suspect]
     Indication: CT SCAN
     Dosage: 100mL One dose IV
     Route: 042
     Dates: start: 20120913, end: 20120913

REACTIONS (2)
  - Dyspnoea [None]
  - Wheezing [None]
